FAERS Safety Report 7384694-7 (Version None)
Quarter: 2011Q1

REPORT INFORMATION
  Report Type: 
  Country: None (occurrence: None)
  Receive Date: 20110330
  Receipt Date: 20110317
  Transmission Date: 20110831
  Serious: Yes (Other)
  Sender: FDA-Public Use
  Company Number: PHHO2011US05458

PATIENT
  Sex: Male
  Weight: 87 kg

DRUGS (12)
  1. AMLODIPINE [Concomitant]
  2. ASCORBIC ACID [Concomitant]
  3. PAZOPANIB [Suspect]
  4. HYDROCHLOROTHIAZIDE [Concomitant]
  5. VITAMIN D [Concomitant]
  6. FISH OIL [Concomitant]
  7. FOLIC ACID [Concomitant]
  8. LORAZEPAM [Concomitant]
  9. TRAZODONE [Concomitant]
  10. VITAMIN B-12 [Concomitant]
  11. AFINITOR [Suspect]
     Indication: BLADDER TRANSITIONAL CELL CARCINOMA
     Dosage: UNK
     Route: 048
     Dates: start: 20110217, end: 20110314
  12. DIOVAN [Concomitant]

REACTIONS (2)
  - BLOOD URIC ACID INCREASED [None]
  - RASH [None]
